FAERS Safety Report 4930803-6 (Version None)
Quarter: 2006Q1

REPORT INFORMATION
  Report Type: 
  Country: None (occurrence: None)
  Receive Date: 20060227
  Receipt Date: 20060214
  Transmission Date: 20060701
  Serious: Yes (Death, Hospitalization)
  Sender: FDA-Public Use
  Company Number: 2005052322

PATIENT
  Age: 59 Year
  Sex: Male
  Weight: 29.4838 kg

DRUGS (7)
  1. SUTENT [Suspect]
     Indication: GASTROINTESTINAL STROMAL TUMOUR
     Dosage: (50 MG, EVERY DAY), ORAL
     Route: 048
     Dates: start: 20050126, end: 20050326
  2. MORPHINE SULFATE [Concomitant]
  3. AMARYL [Concomitant]
  4. OMEPRAZOLE [Concomitant]
  5. ERYTHROPOIETIN (ERYTHROPOIETIN) [Concomitant]
  6. SOLU-MEDROL [Concomitant]
  7. TOTAL PARENTERAL NUTRITION (TOTAL PARENTERAL NUTRITION) [Concomitant]

REACTIONS (12)
  - ABDOMINAL PAIN UPPER [None]
  - BLOOD PRESSURE DIASTOLIC DECREASED [None]
  - DYSPNOEA [None]
  - HAEMOGLOBIN DECREASED [None]
  - HEPATIC ENCEPHALOPATHY [None]
  - HEPATIC FAILURE [None]
  - HEPATIC HAEMORRHAGE [None]
  - HEPATOMEGALY [None]
  - JAUNDICE [None]
  - METASTASES TO LIVER [None]
  - OXYGEN SATURATION DECREASED [None]
  - WHITE BLOOD CELL COUNT ABNORMAL [None]
